FAERS Safety Report 8280640-2 (Version None)
Quarter: 2012Q2

REPORT INFORMATION
  Report Type: 
  Country: None (occurrence: None)
  Receive Date: 20120412
  Receipt Date: 20110714
  Transmission Date: 20120825
  Serious: No
  Sender: FDA-Public Use
  Company Number: US-ASTRAZENECA-2011SE04359

PATIENT
  Age: 79 Year
  Sex: Female
  Weight: 64.4 kg

DRUGS (9)
  1. NEXIUM [Suspect]
     Indication: GASTROOESOPHAGEAL REFLUX DISEASE
     Route: 048
     Dates: start: 20060101, end: 20100101
  2. NEXIUM [Suspect]
     Indication: HIATUS HERNIA
     Route: 048
     Dates: start: 20060101, end: 20100101
  3. PRILOSEC OTC [Suspect]
     Route: 048
  4. NEXIUM [Suspect]
     Route: 048
     Dates: start: 20100101
  5. SUCRALFATE [Suspect]
  6. NORVASC [Concomitant]
     Indication: HYPERTENSION
     Route: 048
  7. BENEZAPRIL/HCTZ [Concomitant]
     Indication: HYPERTENSION
     Route: 048
  8. NEXIUM [Suspect]
     Route: 048
     Dates: start: 20100101
  9. TOPROL-XL [Concomitant]
     Indication: HYPERTENSION
     Route: 048

REACTIONS (4)
  - DRUG DOSE OMISSION [None]
  - CHEST PAIN [None]
  - ABDOMINAL PAIN UPPER [None]
  - DIARRHOEA [None]
